FAERS Safety Report 9138940 (Version 1)
Quarter: 2013Q1

REPORT INFORMATION
  Report Type: Spontaneous
  Country: US (occurrence: US)
  Receive Date: 20130305
  Receipt Date: 20130305
  Transmission Date: 20140127
  Serious: No
  Sender: FDA-Public Use
  Company Number: US-PFIZER INC-2013072094

PATIENT
  Age: 54 Year
  Sex: Female

DRUGS (3)
  1. SKELAXIN [Suspect]
     Dosage: 800 MG, UNK
  2. METHYLPREDNISOLONE [Suspect]
     Dosage: 16 MG, UNK
  3. PENICILLIN VK [Suspect]
     Dosage: 250 MG, UNK

REACTIONS (1)
  - Drug hypersensitivity [Unknown]
